FAERS Safety Report 12460208 (Version 1)
Quarter: 2016Q2

REPORT INFORMATION
  Report Type: Spontaneous
  Country: US (occurrence: US)
  Receive Date: 20160613
  Receipt Date: 20160613
  Transmission Date: 20160815
  Serious: Yes (Other)
  Sender: FDA-Public Use
  Company Number: US-SA-2016SA108065

PATIENT
  Sex: Female

DRUGS (1)
  1. AUBAGIO [Suspect]
     Active Substance: TERIFLUNOMIDE
     Route: 065

REACTIONS (6)
  - Tremor [Unknown]
  - Visual impairment [Unknown]
  - Hypoaesthesia [Unknown]
  - Dizziness [Unknown]
  - Haematochezia [Unknown]
  - Abdominal pain upper [Unknown]
